FAERS Safety Report 4365703-6 (Version None)
Quarter: 2004Q2

REPORT INFORMATION
  Report Type: 
  Country: None (occurrence: None)
  Receive Date: 20040520
  Receipt Date: 20040507
  Transmission Date: 20050107
  Serious: Yes (Hospitalization, Other)
  Sender: FDA-Public Use
  Company Number: 033-0366-990001

PATIENT
  Age: 14 Year
  Sex: Female
  Weight: 30 kg

DRUGS (3)
  1. ZARONTIN [Suspect]
     Indication: PETIT MAL EPILEPSY
     Dosage: 500 MG ORAL
     Route: 048
     Dates: end: 19990214
  2. VALPROATE SODIUM [Suspect]
     Indication: ILL-DEFINED DISORDER
     Dosage: 400 MG ORAL
     Route: 048
     Dates: end: 19990214
  3. AMOXICILLIN TRIHYDRATE [Concomitant]

REACTIONS (10)
  - EOSINOPHIL COUNT INCREASED [None]
  - LEUKOPENIA [None]
  - LYMPHADENOPATHY [None]
  - NASOPHARYNGITIS [None]
  - NEUTROPENIA [None]
  - PURPURA [None]
  - PYREXIA [None]
  - RED BLOOD CELL COUNT DECREASED [None]
  - THROMBOCYTOPENIA [None]
  - URTICARIA GENERALISED [None]
